FAERS Safety Report 18386302 (Version 1)
Quarter: 2020Q4

REPORT INFORMATION
  Report Type: Spontaneous
  Country: CA (occurrence: CA)
  Receive Date: 20201015
  Receipt Date: 20201015
  Transmission Date: 20210114
  Serious: Yes (Other)
  Sender: FDA-Public Use
  Company Number: CA-BAYER-2020-214929

PATIENT
  Sex: Female

DRUGS (1)
  1. MIRENA [Suspect]
     Active Substance: LEVONORGESTREL
     Dosage: 20 ?G PER DAY CONTINUOUSLY
     Route: 015
     Dates: start: 20200806, end: 20201003

REACTIONS (20)
  - Feeling abnormal [Recovering/Resolving]
  - Sluggishness [Recovering/Resolving]
  - Abnormal behaviour [Recovering/Resolving]
  - Depression [Recovering/Resolving]
  - Depressed mood [Recovering/Resolving]
  - Eating disorder [Recovering/Resolving]
  - Menorrhagia [Not Recovered/Not Resolved]
  - Homicidal ideation [Recovering/Resolving]
  - Mental disorder [Recovering/Resolving]
  - Flat affect [Recovering/Resolving]
  - Dysmenorrhoea [Not Recovered/Not Resolved]
  - Self-injurious ideation [Recovering/Resolving]
  - Emotional disorder [Recovering/Resolving]
  - Poor quality sleep [Recovering/Resolving]
  - Presyncope [None]
  - Irritability [Recovering/Resolving]
  - Dizziness [Recovering/Resolving]
  - Hyperhidrosis [Recovering/Resolving]
  - Suicidal ideation [Recovering/Resolving]
  - Device issue [None]

NARRATIVE: CASE EVENT DATE: 2020
